FAERS Safety Report 7043249-4 (Version None)
Quarter: 2010Q4

REPORT INFORMATION
  Report Type: 
  Country: None (occurrence: None)
  Receive Date: 20101013
  Receipt Date: 20100505
  Transmission Date: 20110411
  Serious: No
  Sender: FDA-Public Use
  Company Number: US-ASTRAZENECA-2010SE20763

PATIENT
  Sex: Male
  Weight: 77.1 kg

DRUGS (5)
  1. SYMBICORT [Suspect]
     Indication: CHRONIC OBSTRUCTIVE PULMONARY DISEASE
     Dosage: 160 MCG
     Route: 055
     Dates: start: 20100301
  2. COREG [Concomitant]
  3. LANOXIN [Concomitant]
  4. WARFARIN SODIUM [Concomitant]
  5. ZESTRIL [Concomitant]

REACTIONS (2)
  - CHEST DISCOMFORT [None]
  - DYSPNOEA [None]
